FAERS Safety Report 23944419 (Version 1)
Quarter: 2024Q2

REPORT INFORMATION
  Report Type: Report from Study
  Country: JP (occurrence: JP)
  Receive Date: 20240606
  Receipt Date: 20240606
  Transmission Date: 20240716
  Serious: Yes (Death)
  Sender: FDA-Public Use
  Company Number: JP-MTPC-MTPC2023-0030601

PATIENT
  Age: 91 Year
  Sex: Male
  Weight: 45 kg

DRUGS (1)
  1. VADADUSTAT [Suspect]
     Active Substance: VADADUSTAT
     Indication: Nephrogenic anaemia
     Dosage: 150 MILLIGRAM, QD
     Route: 048
     Dates: start: 20220729, end: 20220810

REACTIONS (1)
  - Cardiac failure acute [Fatal]

NARRATIVE: CASE EVENT DATE: 20220802
